FAERS Safety Report 12238169 (Version 2)
Quarter: 2016Q2

REPORT INFORMATION
  Report Type: Spontaneous
  Country: IE (occurrence: IE)
  Receive Date: 20160405
  Receipt Date: 20160425
  Transmission Date: 20160815
  Serious: Yes (Death, Other)
  Sender: FDA-Public Use
  Company Number: IE-GLAXOSMITHKLINE-IE2016043465

PATIENT
  Age: 50 Year
  Sex: Male
  Weight: 70.4 kg

DRUGS (28)
  1. MEROPENEM TRIHYDRATE [Concomitant]
     Active Substance: MEROPENEM
     Indication: INFECTION
     Dosage: 1 G, UNK
     Dates: start: 20160101, end: 20160108
  2. FOLINIC ACID [Concomitant]
     Active Substance: LEUCOVORIN
     Dosage: 15 MG, QD
     Dates: start: 20160105, end: 20160108
  3. PREZISTA [Suspect]
     Active Substance: DARUNAVIR ETHANOLATE
     Indication: HIV INFECTION
     Dosage: 600 MG, QOD
     Route: 048
     Dates: start: 20151103, end: 20151201
  4. NORVIR [Suspect]
     Active Substance: RITONAVIR
     Indication: HIV INFECTION
     Dosage: 100 MG, QOD
     Route: 048
     Dates: start: 20151103, end: 20151224
  5. PIRITON TABLETS [Concomitant]
     Indication: PRURITUS
     Dosage: 4 MG, UNK
  6. CLONIDINE. [Concomitant]
     Active Substance: CLONIDINE
     Dosage: 50 ?G, UNK
     Dates: start: 20160105, end: 20160108
  7. COPEGUS [Suspect]
     Active Substance: RIBAVIRIN
     Indication: HEPATITIS C
     Dosage: 400 MG, UNK
     Route: 048
     Dates: start: 20150811, end: 20151201
  8. ARCOXIA [Suspect]
     Active Substance: ETORICOXIB
     Indication: ARTHRALGIA
     Dosage: 90 MG, QD
     Route: 048
     Dates: start: 20151117, end: 20151201
  9. LANTUS [Concomitant]
     Active Substance: INSULIN GLARGINE
     Indication: DIABETES MELLITUS
     Dosage: UNK
  10. CETIRIZINE HYDROCHLORIDE. [Concomitant]
     Active Substance: CETIRIZINE HYDROCHLORIDE
     Indication: PRURITUS
     Dosage: 10 MG, QD
     Dates: start: 20151226, end: 20160108
  11. FENTANYL. [Concomitant]
     Active Substance: FENTANYL
     Indication: PAIN
     Dosage: 20 ?G, UNK
     Dates: start: 20160105, end: 20160108
  12. GLYCOPYRRONIUM BROMIDE [Concomitant]
     Active Substance: GLYCOPYRRONIUM
     Indication: SECRETION DISCHARGE
     Dosage: 200-600
     Dates: start: 20160105, end: 20160108
  13. ISENTRESS [Concomitant]
     Active Substance: RALTEGRAVIR POTASSIUM
     Indication: HIV INFECTION
     Dosage: 400 MG, QOD
  14. LANSOPRAZOLE. [Concomitant]
     Active Substance: LANSOPRAZOLE
     Indication: PROPHYLAXIS AGAINST GASTROINTESTINAL ULCER
     Dosage: 30 MG, UNK
     Dates: start: 20151224, end: 20151226
  15. VANCOMYCIN HYDROCHLORIDE. [Concomitant]
     Active Substance: VANCOMYCIN HYDROCHLORIDE
     Indication: INFECTION
     Dosage: 1 G, QOD
     Dates: start: 20160101, end: 20160108
  16. MOVICOL [Concomitant]
     Active Substance: POLYETHYLENE GLYCOL 3350\POTASSIUM CHLORIDE\SODIUM BICARBONATE\SODIUM CHLORIDE
     Indication: GASTROINTESTINAL MOTILITY DISORDER
     Dosage: 1 SACHET DAILY
  17. LAXOSE [Concomitant]
     Indication: GASTROINTESTINAL MOTILITY DISORDER
     Dosage: 30 MG, QD
     Dates: start: 20151226, end: 20160108
  18. SOLPADEINE SOLUBLE TABLETS [Concomitant]
     Indication: PAIN
     Dosage: 1G/16MG
     Dates: start: 20151226, end: 20160105
  19. SENOKOT [Concomitant]
     Active Substance: SENNOSIDES
     Indication: GASTROINTESTINAL MOTILITY DISORDER
     Dosage: 15 MG, UNK (NOCTE)
     Dates: start: 20151226, end: 20160108
  20. SOLU-MEDRONE [Concomitant]
     Active Substance: METHYLPREDNISOLONE SODIUM SUCCINATE
     Dosage: 1 G, UNK
     Dates: start: 20160105, end: 20160108
  21. TRUVADA [Concomitant]
     Active Substance: EMTRICITABINE\TENOFOVIR DISOPROXIL FUMARATE
     Indication: HIV INFECTION
     Dosage: 245MG/200MG
  22. GALFER [Concomitant]
     Active Substance: IRON
     Indication: IRON DEFICIENCY
     Dosage: UNK
  23. PABRINEX [Concomitant]
     Dosage: UNK
     Dates: start: 20160105, end: 20160108
  24. ZANTAC [Suspect]
     Active Substance: RANITIDINE HYDROCHLORIDE
     Indication: PROPHYLAXIS AGAINST GASTROINTESTINAL ULCER
     Dosage: 50 MG, UNK
     Route: 042
     Dates: start: 20151226, end: 20160108
  25. HARVONI [Suspect]
     Active Substance: LEDIPASVIR\SOFOSBUVIR
     Indication: HEPATITIS C
     Dosage: 400MG/9
     Route: 048
     Dates: start: 20150811, end: 20151224
  26. NOVORAPID [Concomitant]
     Active Substance: INSULIN ASPART
     Indication: DIABETES MELLITUS
     Dosage: AS PER SCALE
  27. ECALTA [Concomitant]
     Active Substance: ANIDULAFUNGIN
     Indication: INFECTION
     Dosage: 100 MG, QD
     Dates: start: 20160105, end: 20160108
  28. BETNOVATE [Concomitant]
     Active Substance: BETAMETHASONE
     Indication: RASH
     Dosage: APPLIED SPARINGLY
     Route: 061

REACTIONS (3)
  - Gastrointestinal haemorrhage [Fatal]
  - Immune thrombocytopenic purpura [Fatal]
  - Hypersensitivity [Fatal]

NARRATIVE: CASE EVENT DATE: 20151201
